FAERS Safety Report 6656612-8 (Version None)
Quarter: 2010Q1

REPORT INFORMATION
  Report Type: 
  Country: None (occurrence: None)
  Receive Date: 20100329
  Receipt Date: 20090310
  Transmission Date: 20100710
  Serious: No
  Sender: FDA-Public Use
  Company Number: US-BAUSCH-2009BL001042

PATIENT
  Age: 40 Year
  Sex: Female
  Weight: 55 kg

DRUGS (1)
  1. ACETIC ACID 2% IN AQUEOUS ALUMINUM ACETATE [Suspect]
     Route: 047
     Dates: start: 20090309, end: 20090310

REACTIONS (3)
  - DRUG ADMINISTRATION ERROR [None]
  - EYE IRRITATION [None]
  - OCULAR HYPERAEMIA [None]
